FAERS Safety Report 16695327 (Version 2)
Quarter: 2019Q4

REPORT INFORMATION
  Report Type: Spontaneous
  Country: US (occurrence: US)
  Receive Date: 20190813
  Receipt Date: 20191115
  Transmission Date: 20200122
  Serious: No
  Sender: FDA-Public Use
  Company Number: US-GLAXOSMITHKLINE-US2019143655

PATIENT
  Sex: Female

DRUGS (1)
  1. FLONASE SENSIMIST ALLERGY RELIEF [Suspect]
     Active Substance: FLUTICASONE FUROATE
     Indication: TYMPANOPLASTY
     Dosage: 2 UNK, 1D
     Route: 045
     Dates: start: 20190806, end: 20190806

REACTIONS (4)
  - Product complaint [Unknown]
  - Product use in unapproved indication [Unknown]
  - Incorrect dose administered by product [Unknown]
  - Off label use [Unknown]

NARRATIVE: CASE EVENT DATE: 20190806
